FAERS Safety Report 9531891 (Version 1)
Quarter: 2013Q3

REPORT INFORMATION
  Report Type: Spontaneous
  Country: US (occurrence: US)
  Receive Date: 20130918
  Receipt Date: 20130918
  Transmission Date: 20140515
  Serious: No
  Sender: FDA-Public Use
  Company Number: US-PFIZER INC-2013267479

PATIENT
  Sex: Female

DRUGS (4)
  1. CELEBREX [Suspect]
     Indication: OSTEOARTHRITIS
     Dosage: 200 MG, 1X/DAY
     Dates: start: 2013
  2. CELEBREX [Interacting]
     Dosage: 200 MG, 2X/DAY
     Dates: start: 2013
  3. REMERON [Interacting]
     Indication: DEPRESSION
     Dosage: UNK
  4. CYMBALTA [Interacting]
     Indication: DEPRESSION
     Dosage: UNK

REACTIONS (3)
  - Depression [Unknown]
  - Drug ineffective [Unknown]
  - Drug interaction [Unknown]
